FAERS Safety Report 16243453 (Version 2)
Quarter: 2019Q2

REPORT INFORMATION
  Report Type: Spontaneous
  Country: US (occurrence: US)
  Receive Date: 20190426
  Receipt Date: 20190510
  Transmission Date: 20190711
  Serious: No
  Sender: FDA-Public Use
  Company Number: US-INCYTE CORPORATION-2019IN003821

PATIENT

DRUGS (2)
  1. JAKAFI [Suspect]
     Active Substance: RUXOLITINIB
     Dosage: 15 MILLIGRAM, BID
     Route: 048
     Dates: start: 20180118
  2. JAKAFI [Suspect]
     Active Substance: RUXOLITINIB
     Indication: MYELOFIBROSIS
     Dosage: 15 MILLIGRAM, BID
     Route: 048
     Dates: start: 20180118

REACTIONS (5)
  - Malaise [Recovering/Resolving]
  - Weight increased [Recovering/Resolving]
  - Splenomegaly [Not Recovered/Not Resolved]
  - Dry mouth [Not Recovered/Not Resolved]
  - Night sweats [Not Recovered/Not Resolved]
